FAERS Safety Report 8853441 (Version 1)
Quarter: 2012Q4

REPORT INFORMATION
  Report Type: 
  Country: FR (occurrence: FR)
  Receive Date: 20121022
  Receipt Date: 20121022
  Transmission Date: 20130627
  Serious: Yes (Death)
  Sender: FDA-Public Use
  Company Number: FR-GLAXOSMITHKLINE-B0836985A

PATIENT
  Age: 34 None
  Sex: Male

DRUGS (5)
  1. ZOPHREN [Suspect]
     Indication: PREMEDICATION
     Route: 042
     Dates: start: 20110908, end: 20110909
  2. YONDELIS [Suspect]
     Indication: SARCOMA
     Route: 042
     Dates: start: 20110908, end: 20110908
  3. EMEND [Suspect]
     Indication: PREMEDICATION
     Route: 048
     Dates: start: 20110908, end: 20110909
  4. METHYLPREDNISOLONE [Suspect]
     Indication: PREMEDICATION
     Route: 042
     Dates: start: 20110908, end: 20110908
  5. METHADONE [Suspect]
     Route: 048
     Dates: start: 2006

REACTIONS (20)
  - Multi-organ failure [Fatal]
  - General physical health deterioration [Unknown]
  - Nausea [Unknown]
  - Vomiting [Unknown]
  - Decreased appetite [Unknown]
  - Pancytopenia [Unknown]
  - Renal failure acute [Unknown]
  - Oliguria [Unknown]
  - Anuria [Unknown]
  - Pleural effusion [Unknown]
  - Respiratory failure [Unknown]
  - Ill-defined disorder [Unknown]
  - Hepatitis cholestatic [Unknown]
  - Diarrhoea [Unknown]
  - Bone marrow failure [Unknown]
  - Thrombocytopenia [Unknown]
  - Pupils unequal [Unknown]
  - Cerebral haemorrhage [Unknown]
  - Septic shock [Fatal]
  - Immunosuppression [Unknown]
